FAERS Safety Report 7398518-5 (Version None)
Quarter: 2011Q2

REPORT INFORMATION
  Report Type: 
  Country: None (occurrence: None)
  Receive Date: 20110407
  Receipt Date: 20110330
  Transmission Date: 20111010
  Serious: No
  Sender: FDA-Public Use
  Company Number: US-BIOGENIDEC-2010BI033988

PATIENT
  Age: 43 Year
  Sex: Female

DRUGS (2)
  1. TYSABRI [Suspect]
     Route: 042
     Dates: start: 20090116
  2. TYSABRI [Suspect]
     Indication: MULTIPLE SCLEROSIS
     Route: 042
     Dates: start: 20061019, end: 20081030

REACTIONS (4)
  - MULTIPLE SCLEROSIS RELAPSE [None]
  - HYPOAESTHESIA [None]
  - URINARY INCONTINENCE [None]
  - PRURITUS [None]
